FAERS Safety Report 7897402-8 (Version None)
Quarter: 2011Q4

REPORT INFORMATION
  Report Type: 
  Country: None (occurrence: None)
  Receive Date: 20111107
  Receipt Date: 20111028
  Transmission Date: 20120403
  Serious: Yes (Other)
  Sender: FDA-Public Use
  Company Number: US-AMGEN-USASP2011056301

PATIENT
  Age: 57 Year
  Sex: Female

DRUGS (5)
  1. OXYCODONE/ACETAMINOPHEN [Concomitant]
     Dosage: 4 MG, QD
  2. NEXIUM [Concomitant]
     Dosage: UNK
  3. LEVOTHYROXINE SODIUM [Concomitant]
  4. FASLODEX [Concomitant]
  5. XGEVA [Suspect]
     Indication: METASTASES TO BONE
     Dosage: UNK
     Dates: start: 20110825

REACTIONS (1)
  - METASTASES TO BONE [None]
